FAERS Safety Report 10210795 (Version 1)
Quarter: 2014Q2

REPORT INFORMATION
  Report Type: Spontaneous
  Country: US (occurrence: US)
  Receive Date: 20140602
  Receipt Date: 20140602
  Transmission Date: 20141212
  Serious: No
  Sender: FDA-Public Use
  Company Number: US-JNJFOC-20140519238

PATIENT
  Sex: Female
  Weight: 97.07 kg

DRUGS (4)
  1. DURAGESIC [Suspect]
     Indication: PAIN
     Route: 062
     Dates: start: 201405
  2. DURAGESIC [Suspect]
     Indication: PAIN
     Route: 062
  3. DURAGESIC [Suspect]
     Indication: PAIN
     Route: 062
     Dates: start: 201405
  4. XARELTO [Concomitant]
     Indication: THROMBOSIS
     Route: 048
     Dates: start: 2012

REACTIONS (7)
  - Dermatitis contact [Unknown]
  - Wrong technique in drug usage process [Unknown]
  - Drug dose omission [Recovered/Resolved]
  - Wrong technique in drug usage process [Unknown]
  - Product adhesion issue [Recovered/Resolved]
  - Pain management [Unknown]
  - Treatment noncompliance [Unknown]
